FAERS Safety Report 16285925 (Version 1)
Quarter: 2019Q2

REPORT INFORMATION
  Report Type: Spontaneous
  Country: US (occurrence: US)
  Receive Date: 20190508
  Receipt Date: 20190508
  Transmission Date: 20190711
  Serious: Yes (Other)
  Sender: FDA-Public Use
  Company Number: US-FDC LIMITED-2019RIS00229

PATIENT
  Age: 73 Year
  Sex: Female
  Weight: 112.47 kg

DRUGS (18)
  1. THEOPHYLLINE [Concomitant]
     Active Substance: THEOPHYLLINE ANHYDROUS
     Dosage: 400 UNK, 2X/DAY
  2. WELLBUTRIN [Concomitant]
     Active Substance: BUPROPION HYDROCHLORIDE
     Dosage: 150 UNK, 2X/DAY
  3. OXYGEN. [Concomitant]
     Active Substance: OXYGEN
     Dosage: 24 HOURS A DAY
  4. FUROSEMIDE. [Concomitant]
     Active Substance: FUROSEMIDE
     Dosage: 60 MG, 2X/DAY
  5. OMEPRAZOLE. [Concomitant]
     Active Substance: OMEPRAZOLE
  6. ALLEGRA-D [Concomitant]
     Active Substance: FEXOFENADINE\PSEUDOEPHEDRINE
     Dosage: 1-2 TIMES DAILY
  7. LANTUS [Concomitant]
     Active Substance: INSULIN GLARGINE
     Dosage: 77 U, 2X/DAY
  8. NOVOLOG [Concomitant]
     Active Substance: INSULIN ASPART
     Dosage: 20 U, 3X/DAY
  9. PRESERVISION MULTIVITAMIN [Concomitant]
     Dosage: UNK, 2X/DAY
  10. OTHER UNSPECIFIED MEDICATIONS [Concomitant]
     Active Substance: UNSPECIFIED INGREDIENT
  11. QUYSN [Concomitant]
     Dosage: 250 UNK, 2X/DAY
  12. TOPROLOL [Concomitant]
     Dosage: 50 MG, 1X/DAY
  13. COUMADIN [Concomitant]
     Active Substance: WARFARIN SODIUM
     Dosage: 5 MG, 1X/DAY
  14. TIMOLOL MALEATE. [Suspect]
     Active Substance: TIMOLOL MALEATE
     Indication: INTRAOCULAR PRESSURE INCREASED
  15. ISOSORBIDE. [Concomitant]
     Active Substance: ISOSORBIDE
     Dosage: 30 MG, 2X/DAY
  16. TIMOLOL MALEATE. [Suspect]
     Active Substance: TIMOLOL MALEATE
     Indication: GLAUCOMA
     Dosage: 1 DROP, 2X/DAY IN LEFT EYE
     Route: 047
     Dates: start: 201904
  17. TYLENOL EXTRA STRENGTH [Concomitant]
     Active Substance: ACETAMINOPHEN
     Dosage: 2 DOSAGE UNITS, 2X/DAY
  18. COUMADIN [Concomitant]
     Active Substance: WARFARIN SODIUM
     Dosage: 7.5 MG, 2X/WEEK  ON SUNDAYS AND WEDNESDAYS

REACTIONS (4)
  - Visual impairment [Not Recovered/Not Resolved]
  - Dyspnoea exertional [Not Recovered/Not Resolved]
  - Application site pain [Not Recovered/Not Resolved]
  - Headache [Not Recovered/Not Resolved]

NARRATIVE: CASE EVENT DATE: 201904
